FAERS Safety Report 7067847-7 (Version None)
Quarter: 2010Q4

REPORT INFORMATION
  Report Type: 
  Country: None (occurrence: None)
  Receive Date: 20101028
  Receipt Date: 20101018
  Transmission Date: 20110411
  Serious: Yes (Other)
  Sender: FDA-Public Use
  Company Number: CL-PFIZER INC-2010114820

PATIENT
  Age: 77 Year
  Sex: Male

DRUGS (7)
  1. DETRUSITOL [Suspect]
     Indication: PROSTATIC OPERATION
     Dosage: 2 MG, 2X/DAY
     Route: 048
     Dates: start: 20100901, end: 20100908
  2. DETRUSITOL [Suspect]
     Indication: POLLAKIURIA
  3. ENALAPRIL [Concomitant]
     Dosage: UNK
  4. ASPIRIN [Concomitant]
     Dosage: UNK
  5. ACETAMINOPHEN [Concomitant]
     Dosage: UNK
  6. BECLOMETASONE DIPROPIONATE/SALBUTAMOL [Concomitant]
     Indication: BRONCHITIS
     Dosage: UNK
  7. HEDERA HELIX [Concomitant]
     Indication: BRONCHITIS
     Dosage: UNK

REACTIONS (2)
  - ASPHYXIA [None]
  - PALPITATIONS [None]
